FAERS Safety Report 8047661-6 (Version None)
Quarter: 2012Q1

REPORT INFORMATION
  Report Type: 
  Country: None (occurrence: None)
  Receive Date: 20120116
  Receipt Date: 20120112
  Transmission Date: 20120608
  Serious: Yes (Death)
  Sender: FDA-Public Use
  Company Number: US-VERTEX PHARMACEUTICALS INC.-AE-2012-000779

PATIENT
  Sex: Male

DRUGS (4)
  1. INCIVEK [Suspect]
     Indication: HEPATITIS C
     Route: 048
     Dates: end: 20111201
  2. PEGASYS [Concomitant]
     Indication: HEPATITIS C
     Dates: end: 20111201
  3. COPEGUS [Concomitant]
     Indication: HEPATITIS C
     Dates: end: 20111201
  4. PAIN MEDICATIONS [Concomitant]
     Dates: end: 20111201

REACTIONS (1)
  - DEATH [None]
